FAERS Safety Report 23315561 (Version 1)
Quarter: 2023Q4

REPORT INFORMATION
  Report Type: Spontaneous
  Country: US (occurrence: US)
  Receive Date: 20231219
  Receipt Date: 20231219
  Transmission Date: 20240110
  Serious: No
  Sender: FDA-Public Use
  Company Number: US-ORG100016242-2023000287

PATIENT
  Sex: Female

DRUGS (3)
  1. EXPAREL [Suspect]
     Active Substance: BUPIVACAINE
     Indication: Nerve block
     Dosage: 10 ML ADMINISTERED
     Route: 065
     Dates: start: 20231010, end: 20231010
  2. BUPIVACAINE [Suspect]
     Active Substance: BUPIVACAINE
     Indication: Mastectomy
     Dosage: NOT PROVIDED
     Route: 065
     Dates: start: 20231010, end: 20231010
  3. ROPIVACAINE [Suspect]
     Active Substance: ROPIVACAINE
     Indication: Mastectomy
     Dosage: NOT PROVIDED
     Route: 050
     Dates: start: 20231010, end: 20231010

REACTIONS (2)
  - No adverse event [Unknown]
  - Labelled drug-drug interaction medication error [Unknown]

NARRATIVE: CASE EVENT DATE: 20231010
